FAERS Safety Report 11509319 (Version 1)
Quarter: 2015Q3

REPORT INFORMATION
  Report Type: Spontaneous
  Country: GB (occurrence: GB)
  Receive Date: 20150915
  Receipt Date: 20150915
  Transmission Date: 20151125
  Serious: Yes (Hospitalization)
  Sender: FDA-Public Use
  Company Number: PHHY2015GB107918

PATIENT
  Age: 56 Year
  Sex: Female
  Weight: 79 kg

DRUGS (11)
  1. ONDANSETRON [Concomitant]
     Active Substance: ONDANSETRON
     Indication: PREMEDICATION
     Dosage: STAT
     Route: 065
     Dates: start: 20150709
  2. FLUOROURACIL. [Suspect]
     Active Substance: FLUOROURACIL
     Dosage: UP TO 15 MINUTES, DAY 1 OF EACH 14-DAY CYCLE
     Route: 042
     Dates: start: 20150709
  3. DEXAMETASON [Concomitant]
     Active Substance: DEXAMETHASONE
     Indication: PREMEDICATION
     Dosage: 8 MG, UNK
     Route: 040
     Dates: start: 20150709
  4. ATROPINE. [Concomitant]
     Active Substance: ATROPINE
     Indication: PREMEDICATION
     Dosage: UNK
     Route: 058
     Dates: start: 20150709
  5. ATROPINE. [Concomitant]
     Active Substance: ATROPINE
     Route: 040
  6. FLUOROURACIL. [Suspect]
     Active Substance: FLUOROURACIL
     Indication: COLORECTAL CANCER
     Dosage: OVER 46 HOURS, DAY 1 OF EACH 14-DAY CYCLE
     Route: 042
     Dates: start: 20150709
  7. DEXAMETASON [Concomitant]
     Active Substance: DEXAMETHASONE
     Indication: PROPHYLAXIS OF NAUSEA AND VOMITING
     Dosage: 8 MG, BID
     Route: 048
     Dates: start: 20150709
  8. DOMPERIDONE [Concomitant]
     Active Substance: DOMPERIDONE
     Indication: PROPHYLAXIS OF NAUSEA AND VOMITING
     Dosage: UNK MG, UNK
     Route: 065
  9. VELIPARIB [Suspect]
     Active Substance: VELIPARIB
     Indication: COLORECTAL CANCER
     Dosage: DAY-2 THROUGH DAY 5 OF EACH 14-DAY CYCLE
     Route: 048
     Dates: start: 20150707
  10. LEUCOVORIN. [Concomitant]
     Active Substance: LEUCOVORIN
     Indication: COLORECTAL CANCER
     Route: 042
     Dates: start: 20150709
  11. IRINOTECAN HYDROCHLORIDE. [Suspect]
     Active Substance: IRINOTECAN HYDROCHLORIDE
     Indication: COLORECTAL CANCER
     Dosage: DAY 1 OF EACH 14-DAY CYCLE
     Route: 042
     Dates: start: 20150709

REACTIONS (2)
  - Chest pain [Recovered/Resolved]
  - Chest pain [Unknown]

NARRATIVE: CASE EVENT DATE: 20150713
